FAERS Safety Report 11743792 (Version 2)
Quarter: 2015Q4

REPORT INFORMATION
  Report Type: Spontaneous
  Country: US (occurrence: US)
  Receive Date: 20151116
  Receipt Date: 20151118
  Transmission Date: 20160304
  Serious: Yes (Other)
  Sender: FDA-Public Use
  Company Number: US-SA-2015SA178951

PATIENT
  Sex: Female

DRUGS (4)
  1. LANTUS SOLOSTAR [Suspect]
     Active Substance: INSULIN GLARGINE
     Indication: DIABETES MELLITUS
     Dosage: 12-15 UNITS
     Route: 065
  2. SOLOSTAR [Concomitant]
     Active Substance: DEVICE
     Dates: start: 2004
  3. NOVOLOG [Suspect]
     Active Substance: INSULIN ASPART
     Dosage: FREQUENCY: SIX TIMES A DAY
     Route: 065
  4. LANTUS SOLOSTAR [Suspect]
     Active Substance: INSULIN GLARGINE
     Indication: DIABETES MELLITUS
     Dosage: 20-25 UNITS
     Route: 065
     Dates: start: 2004

REACTIONS (4)
  - Diabetic ketoacidosis [Unknown]
  - Dysarthria [Unknown]
  - Drug administration error [Unknown]
  - Feeling abnormal [Unknown]
